FAERS Safety Report 19873165 (Version 1)
Quarter: 2021Q3

REPORT INFORMATION
  Report Type: Spontaneous
  Country: DE (occurrence: DE)
  Receive Date: 20210922
  Receipt Date: 20210922
  Transmission Date: 20211014
  Serious: Yes (Hospitalization)
  Sender: FDA-Public Use
  Company Number: DE-ANIPHARMA-2021-DE-000208

PATIENT
  Age: 86 Year
  Sex: Male
  Weight: 77 kg

DRUGS (5)
  1. NEBILET [Concomitant]
     Active Substance: NEBIVOLOL
     Dosage: 5 MG QD
     Route: 048
  2. METEX (METHOTREXATE SODIUM) [Suspect]
     Active Substance: METHOTREXATE SODIUM
     Dosage: 7.5 MG UNK
     Route: 048
  3. TAMSULOSIN [Concomitant]
     Active Substance: TAMSULOSIN
     Dosage: .4 MG QD
     Route: 048
  4. BUSERELIN [Suspect]
     Active Substance: BUSERELIN
     Dosage: UNKNOWN DOSE AND FREQUENCY
     Route: 058
  5. CANDESARTAN CILEXETIL AND HYDROCHLOROTHIAZIDE [Suspect]
     Active Substance: CANDESARTAN CILEXETIL\HYDROCHLOROTHIAZIDE
     Indication: PRODUCT USED FOR UNKNOWN INDICATION
     Dosage: 8/12.5 MILLIGRAM, DAILY
     Route: 048

REACTIONS (5)
  - Urinary incontinence [Unknown]
  - Pollakiuria [Unknown]
  - Scrotal swelling [Unknown]
  - Cryptorchism [Unknown]
  - Nocturia [Unknown]
